FAERS Safety Report 5466712-6 (Version None)
Quarter: 2007Q3

REPORT INFORMATION
  Report Type: 
  Country: None (occurrence: None)
  Receive Date: 20070924
  Receipt Date: 20070924
  Transmission Date: 20080115
  Serious: Yes (Hospitalization)
  Sender: FDA-Public Use
  Company Number: None

PATIENT
  Sex: Male
  Weight: 105.2 kg

DRUGS (5)
  1. CYCLOPHOSPHAMIDE [Suspect]
     Dosage: 1370 MG
  2. DAUNORUBICIN HCL [Suspect]
     Dosage: 396 MG
  3. MERCAPTOPURINE [Suspect]
     Dosage: 900 MG
  4. MITOXANTRONE HCL [Suspect]
     Dosage: 180 MG
  5. PEG-L- ASPARAGINASE [Suspect]
     Dosage: 66000 UNIT

REACTIONS (4)
  - ACUTE RESPIRATORY FAILURE [None]
  - CARDIAC FAILURE CONGESTIVE [None]
  - LUNG INFILTRATION [None]
  - TACHYCARDIA [None]
